FAERS Safety Report 8252466-7 (Version None)
Quarter: 2012Q2

REPORT INFORMATION
  Report Type: 
  Country: None (occurrence: None)
  Receive Date: 20120402
  Receipt Date: 20120107
  Transmission Date: 20120825
  Serious: No
  Sender: FDA-Public Use
  Company Number: US-ABBOTT-11P-163-0841145-00

PATIENT
  Sex: Male
  Weight: 73.094 kg

DRUGS (11)
  1. ANDROGEL [Suspect]
     Indication: BLOOD TESTOSTERONE DECREASED
     Route: 061
     Dates: end: 20110101
  2. VESICARE [Concomitant]
     Indication: HYPERTONIC BLADDER
  3. FLOMAX [Concomitant]
     Indication: PROSTATIC DISORDER
  4. LISINOPRIL [Concomitant]
     Indication: HYPERTENSION
  5. SINGULAIR [Concomitant]
     Indication: SINUS DISORDER
  6. FLUTICASONE FUROATE [Concomitant]
     Indication: SINUS DISORDER
     Route: 045
  7. ASPIRIN [Concomitant]
     Indication: CARDIAC DISORDER
     Route: 048
  8. TYLENOL PM [Concomitant]
     Indication: INSOMNIA
  9. VIAGRA [Concomitant]
     Indication: ERECTILE DYSFUNCTION
  10. ASTELIN [Concomitant]
     Indication: SINUS DISORDER
  11. AMOLOPIDINE [Concomitant]
     Indication: HYPERTENSION
     Route: 048

REACTIONS (2)
  - DRUG INEFFECTIVE [None]
  - BLOOD TESTOSTERONE DECREASED [None]
